FAERS Safety Report 14098021 (Version 1)
Quarter: 2017Q4

REPORT INFORMATION
  Report Type: Spontaneous
  Country: GB (occurrence: GB)
  Receive Date: 20171017
  Receipt Date: 20171017
  Transmission Date: 20180321
  Serious: Yes (Other)
  Sender: FDA-Public Use
  Company Number: GB-APOTEX-2017AP020254

PATIENT
  Age: 63 Year
  Sex: Male

DRUGS (19)
  1. OLANZAPINE APOTEX [Suspect]
     Active Substance: OLANZAPINE
     Indication: BIPOLAR DISORDER
     Dosage: 5 MG, Q.H.S.
     Route: 065
     Dates: start: 201307, end: 201311
  2. PAROXETINE. [Suspect]
     Active Substance: PAROXETINE
     Indication: BIPOLAR DISORDER
     Dosage: 50 MG, QD
     Route: 065
     Dates: end: 201304
  3. FLUOXETINE [Suspect]
     Active Substance: FLUOXETINE HYDROCHLORIDE
     Indication: BIPOLAR DISORDER
     Dosage: UNK
     Route: 065
     Dates: start: 201509, end: 201509
  4. PREGABALIN. [Concomitant]
     Active Substance: PREGABALIN
     Indication: ANXIETY
  5. MIRTAZAPINE. [Suspect]
     Active Substance: MIRTAZAPINE
     Dosage: 45 MG, Q.H.S.
     Route: 065
     Dates: start: 201506
  6. PAROXETINE. [Suspect]
     Active Substance: PAROXETINE
     Dosage: TITRATED UPTO 50 MG QD
     Route: 065
     Dates: start: 201311, end: 201406
  7. SERTRALINE [Suspect]
     Active Substance: SERTRALINE HYDROCHLORIDE
     Indication: BIPOLAR DISORDER
     Dosage: UP TO 200 MG, QD
     Route: 065
     Dates: start: 201407
  8. LOFEPRAMINE [Suspect]
     Active Substance: LOFEPRAMINE
     Indication: BIPOLAR DISORDER
     Dosage: 70 MG, QID
     Route: 065
     Dates: start: 201411, end: 201411
  9. OLANZAPINE APOTEX [Suspect]
     Active Substance: OLANZAPINE
     Dosage: 10 MG, Q.H.S.
     Route: 065
     Dates: start: 201311, end: 201406
  10. OLANZAPINE APOTEX [Suspect]
     Active Substance: OLANZAPINE
     Dosage: 7.5 MG, Q.H.S.
     Route: 065
     Dates: start: 201410, end: 201411
  11. PREGABALIN. [Concomitant]
     Active Substance: PREGABALIN
     Indication: DEPRESSION
     Dosage: 150 MG, TID
     Route: 065
     Dates: start: 201410, end: 201601
  12. DIAZEPAM. [Concomitant]
     Active Substance: DIAZEPAM
     Indication: ANXIETY
     Dosage: 5 MG, PRN
     Route: 048
     Dates: start: 201411, end: 201601
  13. QUETIAPINE. [Concomitant]
     Active Substance: QUETIAPINE
     Indication: DEPRESSION
     Dosage: 100 MG, BID
     Route: 065
     Dates: start: 201501, end: 201506
  14. LAMOTRIGINE. [Concomitant]
     Active Substance: LAMOTRIGINE
     Indication: ANXIETY
  15. QUETIAPINE. [Concomitant]
     Active Substance: QUETIAPINE
     Indication: ANXIETY
  16. LAMOTRIGINE. [Concomitant]
     Active Substance: LAMOTRIGINE
     Indication: DEPRESSION
     Dosage: UNK
     Route: 065
     Dates: start: 201511, end: 201511
  17. VENAXX XL PROLONGED-RELEASE CAPSULES [Suspect]
     Active Substance: VENLAFAXINE HYDROCHLORIDE
     Indication: BIPOLAR DISORDER
     Dosage: UP TO 75 MG, BID
     Route: 065
     Dates: start: 201409
  18. MIRTAZAPINE. [Suspect]
     Active Substance: MIRTAZAPINE
     Indication: BIPOLAR DISORDER
     Dosage: TITRATED TO 30 MG NOCTE
     Route: 065
     Dates: start: 201503, end: 201506
  19. ARIPIPRAZOLE. [Suspect]
     Active Substance: ARIPIPRAZOLE
     Indication: BIPOLAR DISORDER
     Dosage: 5 MG, QD
     Route: 065
     Dates: start: 201704

REACTIONS (2)
  - Hyponatraemia [Recovered/Resolved]
  - Drug ineffective [Unknown]
